FAERS Safety Report 22882381 (Version 3)
Quarter: 2023Q4

REPORT INFORMATION
  Report Type: Spontaneous
  Country: US (occurrence: US)
  Receive Date: 20230830
  Receipt Date: 20231130
  Transmission Date: 20240109
  Serious: No
  Sender: FDA-Public Use
  Company Number: US-PFIZER INC-PV202300147377

PATIENT
  Age: 67 Year
  Sex: Female

DRUGS (1)
  1. BRAFTOVI [Suspect]
     Active Substance: ENCORAFENIB
     Indication: Malignant melanoma
     Dosage: 450 MG, DAILY (6 CAPS ORALLY EVERY DAY. TAKE WHOLE WITH OR WITHOUT FOOD. TOTAL DAILY DOSE IS 450MG)
     Route: 048

REACTIONS (2)
  - Dizziness [Unknown]
  - Gastrointestinal infection [Unknown]
